FAERS Safety Report 7538412-X (Version None)
Quarter: 2011Q2

REPORT INFORMATION
  Report Type: 
  Country: None (occurrence: None)
  Receive Date: 20110609
  Receipt Date: 20110531
  Transmission Date: 20111010
  Serious: Yes (Hospitalization, Other)
  Sender: FDA-Public Use
  Company Number: US-BAXTER-2011BH016899

PATIENT
  Sex: Male

DRUGS (1)
  1. DIANEAL [Suspect]
     Indication: PERITONEAL DIALYSIS
     Route: 033

REACTIONS (6)
  - HYPOGLYCAEMIA [None]
  - HEADACHE [None]
  - CALCIPHYLAXIS [None]
  - INFECTION [None]
  - BLOOD PRESSURE DECREASED [None]
  - FALL [None]
